FAERS Safety Report 6021620-7 (Version None)
Quarter: 2008Q4

REPORT INFORMATION
  Report Type: 
  Country: None (occurrence: None)
  Receive Date: 20081229
  Receipt Date: 20081217
  Transmission Date: 20090506
  Serious: Yes (Death, Other)
  Sender: FDA-Public Use
  Company Number: AT-SANOFI-SYNTHELABO-F01200801904

PATIENT
  Sex: Male

DRUGS (7)
  1. NEORECORMON [Concomitant]
     Dates: start: 20080601
  2. NEXIUM [Concomitant]
     Dates: start: 20080601
  3. IBUPROFEN TABLETS [Concomitant]
     Dates: start: 20080601
  4. NOVALGIN [Concomitant]
     Dates: start: 20080601
  5. BEVACIZUMAB [Suspect]
     Route: 042
  6. CAPECITABINE [Suspect]
     Route: 048
  7. OXALIPLATIN [Suspect]
     Indication: COLON CANCER
     Route: 042

REACTIONS (2)
  - PNEUMOTHORAX [None]
  - PULMONARY OEDEMA [None]
